FAERS Safety Report 13454843 (Version 1)
Quarter: 2017Q2

REPORT INFORMATION
  Report Type: Report from Study
  Country: FR (occurrence: FR)
  Receive Date: 20170419
  Receipt Date: 20170419
  Transmission Date: 20170830
  Serious: Yes (Death, Other)
  Sender: FDA-Public Use
  Company Number: FR-MYLANLABS-2017M1023675

PATIENT

DRUGS (2)
  1. BACLOFEN. [Suspect]
     Active Substance: BACLOFEN
     Indication: PRODUCT USED FOR UNKNOWN INDICATION
     Dosage: 7 BOXES EACH CONTAINING 50 TABLETS OF 10 MG
     Route: 048
  2. OXAZEPAM. [Suspect]
     Active Substance: OXAZEPAM
     Indication: PRODUCT USED FOR UNKNOWN INDICATION
     Dosage: EMPTY BLISTER OF 50 MG
     Route: 065

REACTIONS (4)
  - Toxicity to various agents [Fatal]
  - Asphyxia [Fatal]
  - Off label use [Fatal]
  - Completed suicide [Fatal]
